FAERS Safety Report 13302707 (Version 1)
Quarter: 2017Q1

REPORT INFORMATION
  Report Type: Spontaneous
  Country: US (occurrence: US)
  Receive Date: 20170307
  Receipt Date: 20170307
  Transmission Date: 20170428
  Serious: Yes (Hospitalization, Other)
  Sender: FDA-Public Use
  Company Number: US-SMITH AND NEPHEW, INC-2017SMT00121

PATIENT
  Age: 74 Year
  Sex: Male
  Weight: 81.7 kg

DRUGS (1)
  1. REGRANEX [Suspect]
     Active Substance: BECAPLERMIN
     Indication: DIABETIC ULCER
     Dosage: UNK UNK, 1X/DAY FOR 12 HOURS ON AND 12 HOURS OFF
     Route: 061
     Dates: start: 20170120, end: 201702

REACTIONS (3)
  - Toe amputation [Recovered/Resolved with Sequelae]
  - Wound complication [Unknown]
  - Staphylococcal osteomyelitis [Unknown]

NARRATIVE: CASE EVENT DATE: 2017
